FAERS Safety Report 14160388 (Version 2)
Quarter: 2017Q4

REPORT INFORMATION
  Report Type: Report from Study
  Country: None (occurrence: BE)
  Receive Date: 20171104
  Receipt Date: 20171108
  Transmission Date: 20180321
  Serious: Yes (Other)
  Sender: FDA-Public Use
  Company Number: BE-ABBVIE-14P-013-1282190-00

PATIENT
  Age: 69 Year
  Sex: Female

DRUGS (9)
  1. DUODOPA [Suspect]
     Active Substance: CARBIDOPA\LEVODOPA
     Indication: PARKINSON^S DISEASE
     Dosage: AM DOSE= 5ML, CD= 3.8ML/H DURING 16HRS, ED= 2
     Route: 050
     Dates: start: 20140812, end: 20140814
  2. DUODOPA [Suspect]
     Active Substance: CARBIDOPA\LEVODOPA
     Dosage: MD= 5 ML; CD= 2.1 ML/H DURING 16 HRS; EDA= 1.5 ML
     Route: 050
     Dates: start: 20170726
  3. DUODOPA [Suspect]
     Active Substance: CARBIDOPA\LEVODOPA
     Dosage: AM=5ML; CD=2ML/HR DURING 16HRS; ED=1.5ML
     Route: 050
     Dates: start: 20160217, end: 20170726
  4. DUODOPA [Suspect]
     Active Substance: CARBIDOPA\LEVODOPA
     Dosage: AM DOSE= 5ML, CD= 2.7ML/H DURING 16HRS,ED= 2ML
     Route: 050
     Dates: start: 20140930, end: 20141126
  5. DUODOPA [Suspect]
     Active Substance: CARBIDOPA\LEVODOPA
     Dosage: AM DOSE= 5ML, CD= 3ML/H DURING 16HRS, ED= 2ML
     Route: 050
     Dates: start: 20140818, end: 20140819
  6. DUODOPA [Suspect]
     Active Substance: CARBIDOPA\LEVODOPA
     Dosage: AM DOSE= 5ML, CD= 2.8ML/H DURING 16HRS,ED= 2ML
     Route: 050
     Dates: start: 20140819, end: 20140930
  7. DUODOPA [Suspect]
     Active Substance: CARBIDOPA\LEVODOPA
     Dosage: AM DOSE= 5ML, CONTIN DOSE= 2.5ML/H DURING 16HRS, EXTRA DOSE=
     Route: 050
     Dates: start: 20150127, end: 20160217
  8. DUODOPA [Suspect]
     Active Substance: CARBIDOPA\LEVODOPA
     Dosage: AM DOSE= 5ML, CD= 3.6ML/H DURING 16HRS, ED= 2ML
     Route: 050
     Dates: start: 20140814, end: 20140818
  9. DUODOPA [Suspect]
     Active Substance: CARBIDOPA\LEVODOPA
     Dosage: AM = 5 ML, CD = 2.2 ML/H DURING 16H, ED = 2 ML
     Route: 050
     Dates: start: 20141126, end: 20150127

REACTIONS (13)
  - Device connection issue [Unknown]
  - Klebsiella infection [Unknown]
  - Stoma site infection [Recovering/Resolving]
  - Gastrostomy tube site complication [Unknown]
  - Streptococcal infection [Unknown]
  - Granuloma [Unknown]
  - Dyskinesia [Not Recovered/Not Resolved]
  - Gastric fistula [Unknown]
  - Stoma site discharge [Recovered/Resolved]
  - Abdominal wall infection [Unknown]
  - Medical device site infection [Unknown]
  - Gastrointestinal stoma complication [Not Recovered/Not Resolved]
  - Granuloma [Not Recovered/Not Resolved]

NARRATIVE: CASE EVENT DATE: 201507
